FAERS Safety Report 10098990 (Version 3)
Quarter: 2014Q2

REPORT INFORMATION
  Report Type: Report from Study
  Country: US (occurrence: US)
  Receive Date: 20140423
  Receipt Date: 20140630
  Transmission Date: 20141212
  Serious: Yes (Hospitalization)
  Sender: FDA-Public Use
  Company Number: US-ACTELION-A-NJ2014-97737

PATIENT
  Age: 55 Year
  Sex: Male

DRUGS (3)
  1. MACITENTAN [Suspect]
     Indication: PULMONARY ARTERIAL HYPERTENSION
     Dosage: 10 UNK, UNK
     Route: 048
     Dates: start: 20140226
  2. RIOCIGUAT [Concomitant]
  3. WARFARIN [Concomitant]

REACTIONS (7)
  - Transplant evaluation [Unknown]
  - Malaise [Unknown]
  - Pulmonary arterial hypertension [Unknown]
  - Condition aggravated [Unknown]
  - Oedema peripheral [Unknown]
  - Fluid retention [Recovering/Resolving]
  - Peripheral swelling [Unknown]
